FAERS Safety Report 9315240 (Version 5)
Quarter: 2013Q3

REPORT INFORMATION
  Report Type: Spontaneous
  Country: US (occurrence: US)
  Receive Date: 20130529
  Receipt Date: 20130912
  Transmission Date: 20140515
  Serious: Yes (Other)
  Sender: FDA-Public Use
  Company Number: US-BAYER-2013-064202

PATIENT
  Age: 50 Year
  Sex: Female

DRUGS (1)
  1. BETASERON [Suspect]
     Dosage: UNK
     Dates: start: 1994, end: 201305

REACTIONS (7)
  - Injection site ulcer [None]
  - Foreign body [None]
  - Injection site mass [None]
  - Scar [None]
  - Skin disorder [None]
  - Injection site cellulitis [None]
  - Injection site induration [None]
